FAERS Safety Report 5999948-6 (Version None)
Quarter: 2008Q4

REPORT INFORMATION
  Report Type: 
  Country: None (occurrence: None)
  Receive Date: 20081215
  Receipt Date: 20081209
  Transmission Date: 20090506
  Serious: Yes (Life-Threatening, Hospitalization)
  Sender: FDA-Public Use
  Company Number: PHHY2008JP25761

PATIENT
  Sex: Female
  Weight: 48 kg

DRUGS (3)
  1. DIOVAN [Suspect]
     Indication: HYPERTENSION
     Dosage: 80 MG, QD
     Route: 048
     Dates: start: 20040101, end: 20080812
  2. CONIEL [Concomitant]
     Dosage: 4 MG, UNK
     Route: 048
     Dates: start: 20060101
  3. CALCIUM POLYSTYRENE SULFONATE [Concomitant]

REACTIONS (13)
  - ANOREXIA [None]
  - APPETITE DISORDER [None]
  - BLOOD GLUCOSE INCREASED [None]
  - BLOOD PRESSURE INADEQUATELY CONTROLLED [None]
  - CARDIAC ARREST [None]
  - DIARRHOEA [None]
  - HAEMATOCRIT DECREASED [None]
  - HAEMOGLOBIN DECREASED [None]
  - HYPERKALAEMIA [None]
  - HYPERTENSION [None]
  - LOSS OF CONSCIOUSNESS [None]
  - MALAISE [None]
  - RENAL FAILURE CHRONIC [None]
